FAERS Safety Report 4554799-4 (Version None)
Quarter: 2005Q1

REPORT INFORMATION
  Report Type: 
  Country: None (occurrence: None)
  Receive Date: 20041227
  Receipt Date: 20041025
  Transmission Date: 20050727
  Serious: No
  Sender: FDA-Public Use
  Company Number: 2004-0007653

PATIENT
  Age: 35 Year
  Sex: Male
  Weight: 74.8435 kg

DRUGS (5)
  1. VIREAD [Suspect]
     Indication: HIV INFECTION
     Dosage: 300 MG, 1 IN 1 D, ORAL
     Route: 048
     Dates: start: 20030326, end: 20031021
  2. COMBIVIR [Concomitant]
  3. KALETRA [Concomitant]
  4. WELLBUTRIN [Concomitant]
  5. TESTOSTERONE [Concomitant]

REACTIONS (5)
  - BLOOD PHOSPHORUS ABNORMAL [None]
  - BLOOD PHOSPHORUS DECREASED [None]
  - HAEMATURIA [None]
  - THIRST [None]
  - URINE OUTPUT INCREASED [None]
